FAERS Safety Report 5121845-9 (Version None)
Quarter: 2006Q4

REPORT INFORMATION
  Report Type: 
  Country: None (occurrence: None)
  Receive Date: 20061003
  Receipt Date: 20060921
  Transmission Date: 20070319
  Serious: Yes (Hospitalization)
  Sender: FDA-Public Use
  Company Number: MEDI-0004550

PATIENT
  Age: 3 Month
  Weight: 4 kg

DRUGS (3)
  1. SYNAGIS [Suspect]
     Indication: ANTIVIRAL PROPHYLAXIS
     Dosage: SEE IMAGE,        INTRAMUSCULAR
     Route: 030
     Dates: start: 20051116, end: 20051116
  2. SYNAGIS [Suspect]
     Indication: ANTIVIRAL PROPHYLAXIS
     Dosage: SEE IMAGE,        INTRAMUSCULAR
     Route: 030
     Dates: start: 20060112, end: 20060112
  3. SYNAGIS [Suspect]
     Indication: ANTIVIRAL PROPHYLAXIS
     Dosage: SEE IMAGE,        INTRAMUSCULAR
     Route: 030
     Dates: start: 20051215

REACTIONS (2)
  - BRONCHIOLITIS [None]
  - GASTROOESOPHAGEAL REFLUX DISEASE [None]
